APPROVED DRUG PRODUCT: CYPROHEPTADINE HYDROCHLORIDE
Active Ingredient: CYPROHEPTADINE HYDROCHLORIDE
Strength: 4MG
Dosage Form/Route: TABLET;ORAL
Application: A207555 | Product #001 | TE Code: AA
Applicant: RISING PHARMA HOLDINGS INC
Approved: Jan 31, 2017 | RLD: No | RS: No | Type: RX